FAERS Safety Report 13876001 (Version 1)
Quarter: 2017Q3

REPORT INFORMATION
  Report Type: Spontaneous
  Country: US (occurrence: US)
  Receive Date: 20170817
  Receipt Date: 20170817
  Transmission Date: 20171127
  Serious: No
  Sender: FDA-Public Use
  Company Number: US-PFIZER INC-2017348864

PATIENT
  Age: 69 Year
  Sex: Male
  Weight: 63.39 kg

DRUGS (20)
  1. GLUCOPHAGE [Concomitant]
     Active Substance: METFORMIN HYDROCHLORIDE
     Dosage: 500 MG, 3X/DAY [WITH MEALS]
  2. CREON [Concomitant]
     Active Substance: PANCRELIPASE AMYLASE\PANCRELIPASE LIPASE\PANCRELIPASE PROTEASE
     Dosage: 1 DF, 3X/DAY [AKE 24,000 UNITS OF LIPASE BY MOUTH 3 (THREE) TIMES A DAY WITH MEALS]
     Route: 048
  3. SIMETHICONE (DIMETHICONE) [Concomitant]
     Active Substance: DIMETHICONE
     Indication: FLATULENCE
     Dosage: 125 MG, AS NEEDED [CHEW 125 MG DAILY]
     Route: 048
  4. KENALOG [Concomitant]
     Active Substance: TRIAMCINOLONE ACETONIDE
     Dosage: UNK, 2X/DAY (APPLY TO BACK AND RIGHT FOOT)
     Route: 061
  5. VITAMIN D3 [Concomitant]
     Active Substance: CHOLECALCIFEROL
     Dosage: 1 DF, DAILY [1000 UNITS TABLET]
     Route: 048
  6. PRILOSEC [Concomitant]
     Active Substance: OMEPRAZOLE MAGNESIUM
     Dosage: 20 MG, DAILY
     Route: 048
  7. AMARYL [Concomitant]
     Active Substance: GLIMEPIRIDE
     Dosage: 4 MG, 2X/DAY [WITH MEALS]
     Route: 048
  8. PRAVACHOL [Concomitant]
     Active Substance: PRAVASTATIN SODIUM
     Dosage: 40 MG, 1X/DAY [AT BEDTIME]
     Route: 048
  9. SUNITINIB MALATE. [Suspect]
     Active Substance: SUNITINIB MALATE
     Indication: PANCREATIC NEUROENDOCRINE TUMOUR
     Dosage: 50 MG, DAILY [FOR 28 DAYS EVERY 6 WEEKS]
     Route: 048
     Dates: start: 20170512, end: 20170609
  10. SUNITINIB MALATE. [Suspect]
     Active Substance: SUNITINIB MALATE
     Dosage: 37.5 MG, DAILY [FOR 28 DAYS EVERY 6 WEEKS]
     Route: 048
  11. LANTUS [Concomitant]
     Active Substance: INSULIN GLARGINE
     Dosage: UNK [INJECT 24-26 UNITS UNDER THE SKIN DAILY. WITH BREAKFAST]
     Route: 058
  12. KLOR-CON [Concomitant]
     Active Substance: POTASSIUM CHLORIDE
     Dosage: 20 MEQ, DAILY
     Route: 048
  13. FERROUS SULFATE. [Concomitant]
     Active Substance: FERROUS SULFATE
     Dosage: 325 MG, 3X/DAY [WITH MEALS]
     Route: 048
  14. HYDRODIURIL [Concomitant]
     Active Substance: HYDROCHLOROTHIAZIDE
     Dosage: 25 MG, DAILY
     Route: 048
  15. MYCOLOG II [Concomitant]
     Indication: RASH
     Dosage: UNK UNK, 2X/DAY [APPLY 1 APPLICATION TOPICALLY]
     Route: 061
  16. INDERAL [Concomitant]
     Active Substance: PROPRANOLOL HYDROCHLORIDE
     Dosage: 20 MG, 2X/DAY
     Route: 048
  17. VANTIN [Concomitant]
     Active Substance: CEFPODOXIME PROXETIL
     Dosage: 100 MG, 2X/DAY
     Route: 048
  18. K-DUR [Concomitant]
     Active Substance: POTASSIUM CHLORIDE
     Dosage: 20 MEQ, DAILY
     Route: 048
  19. VITAMIN A [Concomitant]
     Active Substance: VITAMIN A
     Dosage: 1 DF, DAILY [10,000 UNITS]
     Route: 048
  20. FLONASE [Concomitant]
     Active Substance: FLUTICASONE PROPIONATE
     Indication: RHINITIS
     Dosage: UNK(2 SPRAYS BY EACH NOSTRIL, 50 MCG/ ACT)

REACTIONS (2)
  - Oral pain [Recovered/Resolved]
  - Fatigue [Recovered/Resolved]
